FAERS Safety Report 7230518 (Version 5)
Quarter: 2014Q4

REPORT INFORMATION
  Report Type: Spontaneous
  Country: US (occurrence: US)
  Receive Date: 20091224
  Receipt Date: 20141201
  Transmission Date: 20150529
  Serious: Yes (Hospitalization, Other)
  Sender: FDA-Public Use
  Company Number: US-BAYER-200943523NA

PATIENT
  Age: 37 Year
  Sex: Female
  Weight: 77.1 kg

DRUGS (8)
  1. COCAINE [Concomitant]
     Active Substance: COCAINE
  2. ERY-TAB [Concomitant]
     Active Substance: ERYTHROMYCIN
     Dosage: UNK
     Dates: start: 2002
  3. YASMIN [Suspect]
     Active Substance: DROSPIRENONE\ETHINYL ESTRADIOL
     Dosage: UNK
     Route: 048
     Dates: start: 200401, end: 200407
  4. PROPOXYPHENE NAPSYLATE W/ACETAMINOPHENE [Concomitant]
     Active Substance: ACETAMINOPHEN\PROPOXYPHENE NAPSYLATE
     Dosage: UNK
     Dates: start: 2002
  5. ALBUTEROL. [Concomitant]
     Active Substance: ALBUTEROL
     Dosage: UNK
     Dates: start: 2002
  6. PROVENTIL [Concomitant]
     Active Substance: ALBUTEROL
  7. MARIJUANA [Concomitant]
     Active Substance: CANNABIS SATIVA SUBSP. INDICA TOP
     Dosage: UNK
     Dates: start: 200404
  8. FLAGYL [Concomitant]
     Active Substance: METRONIDAZOLE\METRONIDAZOLE HYDROCHLORIDE
     Dosage: UNK
     Dates: start: 2001

REACTIONS (11)
  - Deep vein thrombosis [Unknown]
  - Chest discomfort [None]
  - Depression [None]
  - Chest pain [None]
  - Nausea [None]
  - Cerebrovascular accident [Unknown]
  - Cardiac ventricular thrombosis [None]
  - Hyperhidrosis [None]
  - Acute myocardial infarction [None]
  - Vomiting [None]
  - Pulmonary embolism [Unknown]

NARRATIVE: CASE EVENT DATE: 2004
